FAERS Safety Report 14742514 (Version 1)
Quarter: 2018Q2

REPORT INFORMATION
  Report Type: Spontaneous
  Country: JP (occurrence: JP)
  Receive Date: 20180410
  Receipt Date: 20180410
  Transmission Date: 20180711
  Serious: Yes (Other)
  Sender: FDA-Public Use
  Company Number: JP-TEVA-2018-JP-879482

PATIENT
  Age: 4 Decade
  Sex: Female

DRUGS (2)
  1. 5-FLUOROURACIL [Suspect]
     Active Substance: FLUOROURACIL
     Indication: DISSEMINATED INTRAVASCULAR COAGULATION
     Dosage: 600 MG/M2/DAY FOR 24H ON DAYS 1-5. REPEATED EVERY 2 WEEKS
     Route: 041
  2. LEVOFOLINATE CALCIUM [Suspect]
     Active Substance: LEVOLEUCOVORIN CALCIUM
     Indication: DISSEMINATED INTRAVASCULAR COAGULATION
     Dosage: 10 MG/M2/DAY ADMINISTERED IN 60 MIN ON DAYS 1-5. REPEATED EVERY 2 WEEKS.
     Route: 065

REACTIONS (2)
  - Stomatitis [Unknown]
  - Decreased appetite [Unknown]
